FAERS Safety Report 5095499-4 (Version None)
Quarter: 2006Q3

REPORT INFORMATION
  Report Type: 
  Country: None (occurrence: None)
  Receive Date: 20060901
  Receipt Date: 20060901
  Transmission Date: 20061208
  Serious: No
  Sender: FDA-Public Use
  Company Number: None

PATIENT
  Sex: Female
  Weight: 78.4723 kg

DRUGS (1)
  1. ESTRADIOL [Suspect]
     Indication: HOT FLUSH
     Dosage: 0.05 MG PATCH 1/WEEK DERMAL

REACTIONS (2)
  - APPLICATION SITE DERMATITIS [None]
  - PHARMACEUTICAL PRODUCT COMPLAINT [None]
